FAERS Safety Report 7364781-X (Version None)
Quarter: 2011Q1

REPORT INFORMATION
  Report Type: 
  Country: None (occurrence: None)
  Receive Date: 20110316
  Receipt Date: 20110316
  Transmission Date: 20110831
  Serious: Yes (Hospitalization)
  Sender: FDA-Public Use
  Company Number: None

PATIENT
  Age: 73 Year
  Sex: Male
  Weight: 97 kg

DRUGS (2)
  1. LISINOPRIL [Suspect]
     Indication: BLOOD IRON
     Dosage: 30 MG EVERY DAY PO
     Route: 048
     Dates: start: 20091216, end: 20110311
  2. IRON DEXTRAN [Suspect]
     Indication: HYPERTENSION
     Dosage: 975 MG ONCE IV
     Route: 042
     Dates: start: 20110310, end: 20110310

REACTIONS (2)
  - RASH [None]
  - ANGIOEDEMA [None]
